FAERS Safety Report 6985720-7 (Version None)
Quarter: 2010Q3

REPORT INFORMATION
  Report Type: 
  Country: None (occurrence: None)
  Receive Date: 20100913
  Receipt Date: 20100902
  Transmission Date: 20110219
  Serious: Yes (Other)
  Sender: FDA-Public Use
  Company Number: 2010US002853

PATIENT
  Sex: Female

DRUGS (11)
  1. LEXISCAN [Suspect]
     Indication: SCAN MYOCARDIAL PERFUSION
     Dosage: 400 UG, TOTAL DOSE, IV NOS
     Route: 042
     Dates: start: 20100101, end: 20100101
  2. AMBIEN [Concomitant]
  3. ATENOLOL [Concomitant]
  4. CELEBREX [Concomitant]
  5. HYDROCHLOROTHIAZIDE [Concomitant]
  6. POTASSIUM CHLORIDE [Concomitant]
  7. LEVOXYL [Concomitant]
  8. LISINOPRIL [Concomitant]
  9. SIMVASTATIN [Concomitant]
  10. ALENDRONATE SODIUM [Concomitant]
  11. FLUOXETINE [Concomitant]

REACTIONS (1)
  - ELECTROCARDIOGRAM QT PROLONGED [None]
